FAERS Safety Report 9422784 (Version 3)
Quarter: 2013Q3

REPORT INFORMATION
  Report Type: Report from Study
  Country: ES (occurrence: ES)
  Receive Date: 20130726
  Receipt Date: 20130923
  Transmission Date: 20140515
  Serious: Yes (Other)
  Sender: FDA-Public Use
  Company Number: ES-SANOFI-AVENTIS-2013SA072853

PATIENT
  Age: 58 Year
  Sex: Male

DRUGS (8)
  1. CISPLATIN [Suspect]
     Indication: LUNG NEOPLASM MALIGNANT
     Dosage: INFUSION
     Route: 065
  2. TAXOTERE [Suspect]
     Indication: LUNG NEOPLASM MALIGNANT
     Dosage: INFUSION
     Route: 065
  3. TAXOTERE [Suspect]
     Indication: LUNG NEOPLASM MALIGNANT
     Dosage: INFUSION
     Route: 065
  4. DEXAMETHASONE [Concomitant]
     Indication: PREMEDICATION
     Route: 048
  5. DEXAMETHASONE [Concomitant]
     Indication: PREMEDICATION
     Dosage: 8-12 MG ON THE DAY OF CHEMOTHERAPY
     Route: 042
  6. ONDANSETRON [Concomitant]
     Indication: PREMEDICATION
     Route: 042
  7. SALINE [Concomitant]
  8. TELMISARTAN [Concomitant]

REACTIONS (10)
  - Cyanosis [Recovered/Resolved]
  - Infusion related reaction [Recovered/Resolved]
  - Respiratory failure [Recovered/Resolved]
  - Loss of consciousness [Recovered/Resolved]
  - Convulsion [Recovered/Resolved]
  - Hypotension [Recovered/Resolved]
  - Hypersensitivity [Unknown]
  - Erythema [Unknown]
  - Flushing [Unknown]
  - Tachycardia [Unknown]
